FAERS Safety Report 4673002-8 (Version None)
Quarter: 2005Q2

REPORT INFORMATION
  Report Type: 
  Country: None (occurrence: None)
  Receive Date: 20050523
  Receipt Date: 20050510
  Transmission Date: 20051028
  Serious: Yes (Death, Other)
  Sender: FDA-Public Use
  Company Number: 2005073426

PATIENT
  Age: 8 Month
  Sex: Female

DRUGS (4)
  1. SILDENAFIL CITRATE [Suspect]
     Indication: PULMONARY VASCULAR RESISTANCE ABNORMALITY
     Dosage: 4 IN 1 D, ORAL
     Route: 048
  2. EPOPROSTENOL (EPOPROSTENOL) [Suspect]
     Indication: PULMONARY HYPERTENSION
     Dosage: INTRAVENOUS
     Route: 042
  3. EPINEPHRINE [Suspect]
     Indication: WHEEZING
     Dosage: INHALATION
     Route: 055
  4. ALL OTHER THERAPEUTIC PRODUCTS [Concomitant]
     Indication: ILL-DEFINED DISORDER

REACTIONS (16)
  - ANAESTHETIC COMPLICATION [None]
  - ATELECTASIS [None]
  - BRADYCARDIA [None]
  - CARDIAC ARREST [None]
  - CRYING [None]
  - HEPATIC CONGESTION [None]
  - HYPOVENTILATION [None]
  - OXYGEN SATURATION DECREASED [None]
  - PERIPHERAL VASCULAR DISORDER [None]
  - PULMONARY CONGESTION [None]
  - PULMONARY HAEMORRHAGE [None]
  - STRESS [None]
  - SUDDEN DEATH [None]
  - TACHYPNOEA [None]
  - THERAPY NON-RESPONDER [None]
  - WHEEZING [None]
